FAERS Safety Report 10933528 (Version 2)
Quarter: 2015Q2

REPORT INFORMATION
  Report Type: Spontaneous
  Country: US (occurrence: US)
  Receive Date: 20150320
  Receipt Date: 20150526
  Transmission Date: 20150821
  Serious: No
  Sender: FDA-Public Use
  Company Number: US-JNJFOC-20140705292

PATIENT

DRUGS (1)
  1. RISPERIDONE. [Suspect]
     Active Substance: RISPERIDONE
     Indication: DYSPHEMIA
     Route: 065

REACTIONS (5)
  - Product use issue [Unknown]
  - Sedation [Unknown]
  - Therapeutic response unexpected [Unknown]
  - Galactorrhoea [Unknown]
  - Amenorrhoea [Unknown]
